FAERS Safety Report 24782759 (Version 1)
Quarter: 2024Q4

REPORT INFORMATION
  Report Type: Spontaneous
  Country: US (occurrence: None)
  Receive Date: 20241226
  Receipt Date: 20241226
  Transmission Date: 20250115
  Serious: Yes (Life-Threatening, Hospitalization, Disabling, Other)
  Sender: Public
  Company Number: None

PATIENT
  Age: 17 Year
  Sex: Male
  Weight: 67.5 kg

DRUGS (1)
  1. DOXYCYCLINE [Suspect]
     Active Substance: DOXYCYCLINE
     Indication: Acne
     Dates: start: 20240628, end: 20240926

REACTIONS (3)
  - Odynophagia [None]
  - Aplastic anaemia [None]
  - Bone marrow transplant [None]

NARRATIVE: CASE EVENT DATE: 20241014
